FAERS Safety Report 5019577-0 (Version None)
Quarter: 2006Q2

REPORT INFORMATION
  Report Type: 
  Country: None (occurrence: None)
  Receive Date: 20060530
  Receipt Date: 20060522
  Transmission Date: 20061013
  Serious: Yes (Other)
  Sender: FDA-Public Use
  Company Number: 200612117GDS

PATIENT
  Sex: Female

DRUGS (1)
  1. CANESTEN (CLOTRIMAZOLE) [Suspect]
     Dosage: 500 MG, TOTAL DAILY, VAGINAL
     Route: 067
     Dates: start: 20060501

REACTIONS (2)
  - DRUG EXPOSURE DURING PREGNANCY [None]
  - INTRA-UTERINE DEATH [None]
